FAERS Safety Report 9601336 (Version 1)
Quarter: 2013Q4

REPORT INFORMATION
  Report Type: Report from Study
  Country: US (occurrence: US)
  Receive Date: 20131007
  Receipt Date: 20131007
  Transmission Date: 20140711
  Serious: Yes (Other)
  Sender: FDA-Public Use
  Company Number: GXBR2013US001778

PATIENT
  Age: 33 Year
  Sex: Female

DRUGS (5)
  1. BISOPROLOL FUMARATE TABLETS [Suspect]
     Dosage: UNK MG, UNK
  2. FLUOROURACIL [Suspect]
     Dosage: UNK DF, UNK
  3. EPIRUBICIN HYDROCHLORIDE [Suspect]
     Dosage: UNK DF, UNK
  4. CYCLOPHOSPHAMIDE [Suspect]
     Dosage: UNK DF, UNK
  5. LAMIVUDINE [Suspect]
     Dosage: UNK DF, UNK

REACTIONS (1)
  - Febrile neutropenia [Unknown]
